FAERS Safety Report 5615865-5 (Version None)
Quarter: 2008Q1

REPORT INFORMATION
  Report Type: 
  Country: None (occurrence: None)
  Receive Date: 20080201
  Receipt Date: 20080130
  Transmission Date: 20080703
  Serious: Yes (Hospitalization, Other)
  Sender: FDA-Public Use
  Company Number: 2007US002951

PATIENT
  Age: 47 Year
  Sex: Female

DRUGS (4)
  1. PROGRAF [Suspect]
     Indication: RENAL TRANSPLANT
     Dosage: 6 MG, BID, ORAL; 3 MG, BID, ORAL
     Route: 046
     Dates: start: 20060103
  2. MYCOPHENOLATE MOFETIL [Concomitant]
  3. PREDNISONE [Concomitant]
  4. CYCLOSPORINE [Concomitant]

REACTIONS (9)
  - CYTOMEGALOVIRUS GASTROINTESTINAL INFECTION [None]
  - DIARRHOEA [None]
  - DISEASE RECURRENCE [None]
  - GASTRIC HAEMORRHAGE [None]
  - GASTRITIS EROSIVE [None]
  - GLOMERULONEPHRITIS MEMBRANOPROLIFERATIVE [None]
  - INTESTINAL ULCER [None]
  - MALAISE [None]
  - VOMITING [None]
